FAERS Safety Report 7957141-1 (Version None)
Quarter: 2011Q4

REPORT INFORMATION
  Report Type: 
  Country: None (occurrence: None)
  Receive Date: 20111205
  Receipt Date: 20111123
  Transmission Date: 20120403
  Serious: Yes (Other)
  Sender: FDA-Public Use
  Company Number: IE-MEDIMMUNE-MEDI-0013987

PATIENT
  Weight: 2.88 kg

DRUGS (4)
  1. FERROUS SULFATE TAB [Concomitant]
  2. SYNAGIS [Suspect]
     Route: 030
     Dates: start: 20111026, end: 20111026
  3. SYNAGIS [Suspect]
     Route: 030
     Dates: start: 20111123, end: 20111123
  4. KAPSOVIT [Concomitant]

REACTIONS (2)
  - BRONCHIOLITIS [None]
  - COUGH [None]
